FAERS Safety Report 11501652 (Version 2)
Quarter: 2016Q3

REPORT INFORMATION
  Report Type: Spontaneous
  Country: US (occurrence: US)
  Receive Date: 20150914
  Receipt Date: 20160805
  Transmission Date: 20161109
  Serious: Yes (Other)
  Sender: FDA-Public Use
  Company Number: US-AMGEN-USASP2015093016

PATIENT
  Age: 76 Year
  Sex: Female

DRUGS (1)
  1. PROLIA [Suspect]
     Active Substance: DENOSUMAB
     Indication: OSTEOPOROSIS POSTMENOPAUSAL
     Dosage: 60 MG, Q6MO
     Route: 065
     Dates: start: 20130425

REACTIONS (4)
  - Pruritus generalised [Recovered/Resolved]
  - Blood cholesterol increased [Unknown]
  - Alanine aminotransferase increased [Unknown]
  - Limb operation [Unknown]

NARRATIVE: CASE EVENT DATE: 201504
